FAERS Safety Report 4968351-X (Version None)
Quarter: 2006Q1

REPORT INFORMATION
  Report Type: 
  Country: None (occurrence: None)
  Receive Date: 20060201
  Receipt Date: 20051228
  Transmission Date: 20060701
  Serious: No
  Sender: FDA-Public Use
  Company Number: 2005PV006357

PATIENT
  Sex: Female

DRUGS (2)
  1. BYETTA [Suspect]
     Indication: DIABETES MELLITUS
     Dosage: 5 MCG;BID;SC
     Route: 058
     Dates: start: 20051101
  2. PREDNISONE TAB [Concomitant]

REACTIONS (5)
  - BLOOD GLUCOSE INCREASED [None]
  - ERUCTATION [None]
  - FOOD CRAVING [None]
  - HUNGER [None]
  - NAUSEA [None]
